FAERS Safety Report 11416276 (Version 1)
Quarter: 2015Q3

REPORT INFORMATION
  Report Type: Report from Study
  Country: KR (occurrence: KR)
  Receive Date: 20150825
  Receipt Date: 20150825
  Transmission Date: 20151125
  Serious: Yes (Hospitalization)
  Sender: FDA-Public Use
  Company Number: KR-ASTELLAS-2015US029933

PATIENT
  Age: 75 Year
  Sex: Male

DRUGS (8)
  1. ASPIRIN PROTECT [Concomitant]
     Active Substance: ASPIRIN
     Indication: CEREBRAL INFARCTION
     Route: 048
     Dates: start: 20150512
  2. DEXILANT [Concomitant]
     Active Substance: DEXLANSOPRAZOLE
     Indication: CEREBRAL INFARCTION
     Route: 048
     Dates: start: 20150512
  3. CARDURA [Concomitant]
     Active Substance: DOXAZOSIN MESYLATE
     Indication: BENIGN PROSTATIC HYPERPLASIA
     Dosage: 8 MG DAILY, TWICE DAILY
     Route: 048
     Dates: start: 20150512
  4. CERANADE [Concomitant]
     Indication: CEREBRAL INFARCTION
     Route: 048
     Dates: start: 20150512
  5. HINECHOL [Concomitant]
     Indication: BENIGN PROSTATIC HYPERPLASIA
     Dosage: 100 MG DAILY, TWICE DAILY
     Route: 048
     Dates: start: 20150512
  6. GLIALFO [Concomitant]
     Indication: CEREBRAL INFARCTION
     Dosage: 800 MG DAILY, TWICE DAILY
     Route: 048
     Dates: start: 20150512
  7. NEWVAST [Concomitant]
     Indication: CEREBRAL INFARCTION
     Route: 048
     Dates: start: 20150512
  8. MIRABEGRON [Suspect]
     Active Substance: MIRABEGRON
     Indication: HYPERTONIC BLADDER
     Route: 048
     Dates: start: 20150609

REACTIONS (2)
  - Pneumonia [Recovered/Resolved]
  - Hypoglycaemia [Recovered/Resolved]

NARRATIVE: CASE EVENT DATE: 20150719
